FAERS Safety Report 8800259 (Version 1)
Quarter: 2012Q4

REPORT INFORMATION
  Report Type: 
  Country: GB (occurrence: GB)
  Receive Date: 20120921
  Receipt Date: 20120921
  Transmission Date: 20130627
  Serious: Yes (Other)
  Sender: FDA-Public Use
  Company Number: GB-VERTEX PHARMACEUTICAL INC.-2012-020342

PATIENT
  Age: 57 Year
  Sex: Male
  Weight: 91.4 kg

DRUGS (5)
  1. INCIVO [Suspect]
     Indication: HEPATITIS C
     Dosage: UNK
     Route: 065
  2. INCIVO [Suspect]
     Dosage: Dosage Form: Tablet
     Route: 065
  3. PEGASYS [Suspect]
     Indication: HEPATITIS C
     Dosage: 135 ?g, Once a week
     Route: 058
  4. PEGASYS [Suspect]
     Dosage: 180 ?g, Once a week
     Route: 058
     Dates: start: 20120716, end: 20120816
  5. RIBAVIRIN [Suspect]
     Indication: HEPATITIS C
     Dosage: 1.2 g, qd
     Route: 048
     Dates: start: 20120716, end: 20120816

REACTIONS (2)
  - Platelet count decreased [Recovered/Resolved]
  - Blood albumin decreased [Recovered/Resolved]
